FAERS Safety Report 4949479-7 (Version None)
Quarter: 2006Q1

REPORT INFORMATION
  Report Type: 
  Country: None (occurrence: None)
  Receive Date: 20060315
  Receipt Date: 20060221
  Transmission Date: 20060701
  Serious: Yes (Death, Other)
  Sender: FDA-Public Use
  Company Number: US200602004238

PATIENT
  Age: 24 Year
  Sex: Male
  Weight: 81.6 kg

DRUGS (1)
  1. STRATTERA [Suspect]
     Indication: ATTENTION DEFICIT/HYPERACTIVITY DISORDER
     Dosage: 20 MG, 2/D,

REACTIONS (7)
  - ARRHYTHMIA [None]
  - CARDIOMEGALY [None]
  - HYPERTROPHIC CARDIOMYOPATHY [None]
  - PULMONARY CONGESTION [None]
  - PULMONARY OEDEMA [None]
  - VENTRICULAR HYPERTROPHY [None]
  - VOMITING [None]
